FAERS Safety Report 9110364 (Version 1)
Quarter: 2013Q1

REPORT INFORMATION
  Report Type: Spontaneous
  Country: US (occurrence: US)
  Receive Date: 20130219
  Receipt Date: 20130219
  Transmission Date: 20140127
  Serious: Yes (Other)
  Sender: FDA-Public Use
  Company Number: US-BRISTOL-MYERS SQUIBB COMPANY-16575128

PATIENT
  Age: 56 Year
  Sex: Female

DRUGS (3)
  1. ORENCIA [Suspect]
     Indication: RHEUMATOID ARTHRITIS
     Dosage: HELD BETWN 17MAY12-20AUG12?LAST DATE OF INFUSION: 4/19/2012
     Route: 042
     Dates: start: 20110531
  2. PREDNISONE [Suspect]
  3. PLAQUENIL [Concomitant]

REACTIONS (1)
  - Sinusitis [Unknown]
